FAERS Safety Report 8871769 (Version 1)
Quarter: 2012Q4

REPORT INFORMATION
  Report Type: 
  Country: US (occurrence: US)
  Receive Date: 20121023
  Receipt Date: 20121023
  Transmission Date: 20130627
  Serious: Yes (Other)
  Sender: FDA-Public Use
  Company Number: US-ASTELLAS-2012US006444

PATIENT
  Sex: Male
  Weight: 66 kg

DRUGS (2)
  1. PROGRAF [Suspect]
     Indication: RENAL TRANSPLANT
     Dosage: 2 mg in the morning/0.5 mg in the evening
     Route: 048
     Dates: start: 2003
  2. PROGRAF [Suspect]
     Indication: PANCREAS TRANSPLANT
     Dosage: 1 mg, Unknown/D
     Route: 048
     Dates: start: 2003

REACTIONS (3)
  - Off label use [Unknown]
  - Kidney transplant rejection [Unknown]
  - Malaise [Unknown]
